FAERS Safety Report 12795024 (Version 1)
Quarter: 2016Q3

REPORT INFORMATION
  Report Type: Spontaneous
  Country: BR (occurrence: BR)
  Receive Date: 20160929
  Receipt Date: 20160929
  Transmission Date: 20161109
  Serious: Yes (Hospitalization, Other)
  Sender: FDA-Public Use
  Company Number: BR-GLAXOSMITHKLINE-BR2016GSK141402

PATIENT
  Sex: Male
  Weight: 85 kg

DRUGS (8)
  1. CLENIL [Concomitant]
     Active Substance: BECLOMETHASONE DIPROPIONATE
     Dosage: 2 PUFF(S), QD
     Route: 055
  2. ANORO ELLIPTA [Suspect]
     Active Substance: UMECLIDINIUM BROMIDE\VILANTEROL TRIFENATATE
     Indication: EMPHYSEMA
     Dosage: 2 UNK, QD
     Route: 055
     Dates: start: 20160821
  3. DUOVENT [Concomitant]
     Active Substance: FENOTEROL HYDROBROMIDE
     Indication: EMPHYSEMA
     Route: 055
  4. VALSARTAN. [Concomitant]
     Active Substance: VALSARTAN
     Indication: HYPERTENSION
     Route: 048
  5. AEROLIN [Suspect]
     Active Substance: ALBUTEROL
     Indication: EMPHYSEMA
     Dosage: 4 PUFF(S), QD
     Route: 055
  6. DAXAS [Concomitant]
     Active Substance: ROFLUMILAST
     Indication: EMPHYSEMA
     Route: 048
  7. INDAPAMIDA [Concomitant]
     Active Substance: INDAPAMIDE
     Indication: HYPERTENSION
     Dosage: 1 UNK, QD
     Route: 048
  8. BEROTEC [Concomitant]
     Active Substance: FENOTEROL HYDROBROMIDE
     Indication: EMPHYSEMA
     Dosage: 5 UNK, UNK
     Route: 055

REACTIONS (3)
  - Pneumonia [Unknown]
  - Urinary tract infection [Unknown]
  - Emphysema [Unknown]
